FAERS Safety Report 10495773 (Version 1)
Quarter: 2014Q4

REPORT INFORMATION
  Report Type: Report from Study
  Country: US (occurrence: US)
  Receive Date: 20141003
  Receipt Date: 20141003
  Transmission Date: 20150528
  Serious: Yes (Other)
  Sender: FDA-Public Use
  Company Number: US-ABBVIE-14P-163-1290347-00

PATIENT
  Age: 24 Year
  Sex: Female

DRUGS (6)
  1. NORETHINDRONE ACETATE. [Suspect]
     Active Substance: NORETHINDRONE ACETATE
     Indication: ENDOMETRIOSIS
     Dates: start: 201102
  2. LUPRON DEPOT [Suspect]
     Active Substance: LEUPROLIDE ACETATE
     Indication: UTERINE LEIOMYOMA
  3. LUPRON DEPOT [Suspect]
     Active Substance: LEUPROLIDE ACETATE
     Indication: ENDOMETRIOSIS
     Dates: start: 201102, end: 201104
  4. TYLENOL [Concomitant]
     Active Substance: ACETAMINOPHEN
     Indication: PRODUCT USED FOR UNKNOWN INDICATION
  5. NORETHINDRONE ACETATE. [Suspect]
     Active Substance: NORETHINDRONE ACETATE
     Indication: UTERINE LEIOMYOMA
  6. EST ESTROGEN METHTEST [Concomitant]
     Indication: PRODUCT USED FOR UNKNOWN INDICATION
     Dosage: 1.25/2.5MG

REACTIONS (13)
  - Hysterectomy [Not Recovered/Not Resolved]
  - Abdominal pain [Unknown]
  - Endometriosis [Unknown]
  - Menorrhagia [Unknown]
  - Adhesion [Unknown]
  - Endometriosis [Unknown]
  - Adhesion [Unknown]
  - Adhesion [Unknown]
  - Uterine cyst [Unknown]
  - Endometriosis [Unknown]
  - Dysmenorrhoea [Unknown]
  - Endometriosis [Unknown]
  - Gastric bypass [Unknown]

NARRATIVE: CASE EVENT DATE: 201103
